FAERS Safety Report 9710761 (Version 1)
Quarter: 2013Q4

REPORT INFORMATION
  Report Type: Spontaneous
  Country: US (occurrence: US)
  Receive Date: 20131126
  Receipt Date: 20131126
  Transmission Date: 20140711
  Serious: No
  Sender: FDA-Public Use
  Company Number: US-BRISTOL-MYERS SQUIBB COMPANY-18982728

PATIENT
  Age: 51 Year
  Sex: 0
  Weight: 93.87 kg

DRUGS (3)
  1. BYETTA PEN DISPOSABLE [Suspect]
     Indication: TYPE 2 DIABETES MELLITUS
     Dosage: INJECT 5 MCG TWICE A DAY, BUT THE PHARMACY DISPENSED A 10MCG BYETTA PEN
  2. NOVOLOG [Concomitant]
     Dosage: SLIDING SCALE S
  3. LANTUS [Concomitant]
     Dosage: 1DF:42 UNIT NOS

REACTIONS (1)
  - Drug dispensing error [Unknown]
